FAERS Safety Report 9579966 (Version 1)
Quarter: 2013Q3

REPORT INFORMATION
  Report Type: Spontaneous
  Country: US (occurrence: None)
  Receive Date: 20130930
  Receipt Date: 20130930
  Transmission Date: 20140515
  Serious: Yes (Hospitalization)
  Sender: FDA-Public Use
  Company Number: None

PATIENT
  Age: 75 Year
  Sex: Female
  Weight: 84.82 kg

DRUGS (2)
  1. AMIODARONE [Suspect]
     Indication: CARDIAC DISORDER
     Dosage: 1 TABLET; ONCE DAILY
     Route: 048
     Dates: start: 20130717, end: 20130916
  2. AMIODARONE [Suspect]
     Indication: ATRIAL FIBRILLATION
     Dosage: 1 TABLET; ONCE DAILY
     Route: 048
     Dates: start: 20130717, end: 20130916

REACTIONS (1)
  - Pancreatitis [None]
